FAERS Safety Report 7034343 (Version 3)
Quarter: 2020Q3

REPORT INFORMATION
  Report Type: Spontaneous
  Country: US (occurrence: US)
  Receive Date: 20090626
  Receipt Date: 20200706
  Transmission Date: 20201103
  Serious: Yes (Other)
  Sender: FDA-Public Use
  Company Number: US-PFIZER INC-2009230232

PATIENT
  Age: 47 Year
  Sex: Female

DRUGS (4)
  1. SERTRALINE HCL [Suspect]
     Active Substance: SERTRALINE HYDROCHLORIDE
     Indication: DEPRESSION
     Dosage: 50 MG, DAILY
     Dates: end: 20090612
  2. EPIPEN [Suspect]
     Active Substance: EPINEPHRINE
     Indication: DRUG HYPERSENSITIVITY
     Dosage: UNK
     Dates: start: 20090605
  3. CLARITIN [Concomitant]
     Active Substance: LORATADINE
  4. AMOXICILLIN. [Suspect]
     Active Substance: AMOXICILLIN
     Dosage: UNK

REACTIONS (7)
  - Parosmia [Unknown]
  - Confusional state [Recovering/Resolving]
  - Hypersensitivity [Recovering/Resolving]
  - Feeling abnormal [Unknown]
  - Tinnitus [Unknown]
  - Hypokalaemia [Recovered/Resolved]
  - Hypertension [Unknown]

NARRATIVE: CASE EVENT DATE: 20090605
